FAERS Safety Report 7223317-4 (Version None)
Quarter: 2011Q1

REPORT INFORMATION
  Report Type: 
  Country: None (occurrence: None)
  Receive Date: 20110112
  Receipt Date: 20100426
  Transmission Date: 20110831
  Serious: No
  Sender: FDA-Public Use
  Company Number: US-ALLERGAN-1005422US

PATIENT
  Sex: Female

DRUGS (4)
  1. XALATAN [Concomitant]
  2. LIPITOR [Concomitant]
  3. RESTASIS [Suspect]
     Indication: DRY EYE
     Dosage: UNK
     Route: 047
     Dates: start: 20100401
  4. MULTI-VITAMIN [Concomitant]

REACTIONS (1)
  - EYE IRRITATION [None]
